FAERS Safety Report 17437657 (Version 1)
Quarter: 2020Q1

REPORT INFORMATION
  Report Type: Spontaneous
  Country: SG (occurrence: SG)
  Receive Date: 20200219
  Receipt Date: 20200219
  Transmission Date: 20200409
  Serious: Yes (Other)
  Sender: FDA-Public Use
  Company Number: SG-JAZZ-2020-SG-002306

PATIENT
  Age: 55 Year
  Sex: Male

DRUGS (6)
  1. GEMCITABINE. [Suspect]
     Active Substance: GEMCITABINE
     Indication: HEPATOSPLENIC T-CELL LYMPHOMA
     Dosage: UNKNOWN DOSE
  2. METHOTREXATE. [Suspect]
     Active Substance: METHOTREXATE
     Indication: HEPATOSPLENIC T-CELL LYMPHOMA
     Dosage: UNKNOWN DOSE
  3. DEXAMETHASONE. [Suspect]
     Active Substance: DEXAMETHASONE
     Indication: HEPATOSPLENIC T-CELL LYMPHOMA
     Dosage: UNKNOWN DOSE
  4. CISPLATIN. [Suspect]
     Active Substance: CISPLATIN
     Indication: HEPATOSPLENIC T-CELL LYMPHOMA
     Dosage: UNKNOWN DOSE
  5. ETOPOSIDE. [Suspect]
     Active Substance: ETOPOSIDE
     Indication: HEPATOSPLENIC T-CELL LYMPHOMA
     Dosage: UNKNOWN DOSE
  6. ASPARAGINASE [Suspect]
     Active Substance: ASPARAGINASE
     Indication: HEPATOSPLENIC T-CELL LYMPHOMA
     Dosage: UNKNOWN DOSE

REACTIONS (2)
  - Hepatosplenic T-cell lymphoma [Recovered/Resolved]
  - Disease progression [Recovered/Resolved]
